FAERS Safety Report 13913688 (Version 1)
Quarter: 2017Q3

REPORT INFORMATION
  Report Type: Spontaneous
  Country: US (occurrence: US)
  Receive Date: 20170828
  Receipt Date: 20170828
  Transmission Date: 20171127
  Serious: No
  Sender: FDA-Public Use
  Company Number: US-ROCHE-1138658

PATIENT
  Age: 19 Year
  Sex: Male
  Weight: 43.6 kg

DRUGS (4)
  1. LANOXIN [Concomitant]
     Active Substance: DIGOXIN
  2. PRINIVIL [Concomitant]
     Active Substance: LISINOPRIL
  3. COREG [Concomitant]
     Active Substance: CARVEDILOL
  4. NUTROPIN AQ [Suspect]
     Active Substance: SOMATROPIN
     Indication: HYPOPITUITARISM
     Route: 030
     Dates: start: 19870418

REACTIONS (1)
  - Cardiac output decreased [Unknown]

NARRATIVE: CASE EVENT DATE: 200109
